FAERS Safety Report 11050450 (Version 1)
Quarter: 2015Q2

REPORT INFORMATION
  Report Type: Spontaneous
  Country: US (occurrence: None)
  Receive Date: 20150420
  Receipt Date: 20150420
  Transmission Date: 20150821
  Serious: No
  Sender: FDA-Public Use
  Company Number: None

PATIENT

DRUGS (2)
  1. LEVOFLOXACIN LEVOFLOXACIN [Suspect]
     Active Substance: LEVOFLOXACIN
  2. LEVOTHYROXINE SODIUM LEVOTHYROXINE [Suspect]
     Active Substance: LEVOTHYROXINE SODIUM

REACTIONS (2)
  - Wrong drug administered [None]
  - Drug dispensing error [None]
